FAERS Safety Report 6460479-0 (Version None)
Quarter: 2009Q4

REPORT INFORMATION
  Report Type: 
  Country: None (occurrence: None)
  Receive Date: 20091130
  Receipt Date: 20091124
  Transmission Date: 20100525
  Serious: Yes (Hospitalization)
  Sender: FDA-Public Use
  Company Number: FR-ROCHE-670935

PATIENT
  Sex: Female

DRUGS (7)
  1. ROCEPHIN [Suspect]
     Indication: ANTIBIOTIC THERAPY
     Dosage: FORM: POWDER FOR SOLUTION FOR INFUSION.
     Route: 042
     Dates: start: 20091001, end: 20091001
  2. VANCOMYCIN [Suspect]
     Indication: ANTIBIOTIC THERAPY
     Route: 042
     Dates: start: 20090601, end: 20090601
  3. VANCOMYCIN [Suspect]
     Route: 042
     Dates: start: 20091002, end: 20091002
  4. ALKERAN [Concomitant]
     Dosage: SECOND COURSE RECEIVED ON 17 SEPTEMBER 2009
     Dates: start: 20090818
  5. OFLOCET [Concomitant]
     Indication: ANTIBIOTIC THERAPY
     Dates: start: 20091001
  6. GENTAMICIN [Concomitant]
     Indication: ANTIBIOTIC THERAPY
     Dates: start: 20090601, end: 20090601
  7. PYOSTACINE [Concomitant]
     Dates: start: 20090601

REACTIONS (1)
  - SHOCK [None]
